FAERS Safety Report 9275949 (Version 1)
Quarter: 2013Q2

REPORT INFORMATION
  Report Type: Spontaneous
  Country: GB (occurrence: GB)
  Receive Date: 20130507
  Receipt Date: 20130507
  Transmission Date: 20140414
  Serious: Yes (Hospitalization)
  Sender: FDA-Public Use
  Company Number: GB-MERCK-1303GBR013800

PATIENT
  Age: 54 Year
  Sex: Male

DRUGS (4)
  1. SYCREST [Suspect]
     Indication: SCHIZOAFFECTIVE DISORDER
     Dosage: 10 MG, BID
     Route: 060
     Dates: start: 201303
  2. HALDOL [Suspect]
     Dosage: UNK
  3. DEPAKOTE [Suspect]
     Dosage: UNK
  4. CLONAZEPAM [Concomitant]
     Dosage: UNK

REACTIONS (3)
  - Cellulitis [Unknown]
  - Local swelling [Unknown]
  - Off label use [Unknown]
